FAERS Safety Report 7794682 (Version 3)
Quarter: 2014Q1

REPORT INFORMATION
  Report Type: Spontaneous
  Country: FR (occurrence: FR)
  Receive Date: 20110201
  Receipt Date: 20140102
  Transmission Date: 20141002
  Serious: Yes (Hospitalization, Other)
  Sender: FDA-Public Use
  Company Number: FR-WATSON-2011-01158

PATIENT
  Age: 6 Month
  Sex: Female
  Weight: 6 kg

DRUGS (4)
  1. SALBUTAMOL [Suspect]
     Indication: BRONCHIOLITIS
     Dosage: UNK
     Route: 055
     Dates: start: 20110112, end: 20110117
  2. SOLU MEDROL [Concomitant]
     Indication: PRODUCT USED FOR UNKNOWN INDICATION
     Dosage: 5 MG, UNK
     Route: 042
     Dates: start: 20110111, end: 20110116
  3. CELESTENE                          /00008501/ [Concomitant]
     Indication: BRONCHIOLITIS
     Dosage: 60 GTT, UNK
     Route: 048
     Dates: start: 20110116, end: 20110117
  4. AUGMENTIN [Suspect]
     Indication: PRODUCT USED FOR UNKNOWN INDICATION
     Dosage: UNK
     Dates: start: 20110113, end: 20110118

REACTIONS (2)
  - Oxygen saturation abnormal [Recovered/Resolved]
  - Respiratory disorder [Recovered/Resolved]
